FAERS Safety Report 8365892-2 (Version None)
Quarter: 2012Q2

REPORT INFORMATION
  Report Type: 
  Country: None (occurrence: None)
  Receive Date: 20120517
  Receipt Date: 20120509
  Transmission Date: 20120825
  Serious: Yes (Other)
  Sender: FDA-Public Use
  Company Number: US-ASTRAZENECA-2011SE32258

PATIENT
  Age: 54 Year
  Sex: Female

DRUGS (16)
  1. PEPCID [Concomitant]
     Dosage: ONCE OR TWICE A MONTH
  2. KOPIDEX [Concomitant]
     Route: 048
  3. FENOFIBRATE [Concomitant]
  4. BISMUTH SUBSALICYLATE [Concomitant]
  5. NEXIUM [Suspect]
     Dosage: 40 MG DAILY ONE HOUR BEFORE BREAKFAST
     Route: 048
     Dates: start: 20100409
  6. NEXIUM [Suspect]
     Route: 048
     Dates: start: 20080509
  7. ESTRADIOL [Concomitant]
  8. LEXAPRO [Concomitant]
     Dosage: 10 MG QAM
  9. NEXIUM [Suspect]
     Route: 048
     Dates: start: 20080509
  10. ALKA SELTZER [Concomitant]
  11. PREVACID [Concomitant]
     Dates: start: 20080421, end: 20080509
  12. NEXIUM [Suspect]
     Indication: GASTROOESOPHAGEAL REFLUX DISEASE
     Dosage: EVERYDAY
     Route: 048
     Dates: start: 20020101, end: 20110101
  13. NEXIUM [Suspect]
     Indication: DYSPEPSIA
     Dosage: EVERYDAY
     Route: 048
     Dates: start: 20020101, end: 20110101
  14. NEXIUM [Suspect]
     Dosage: 40 MG DAILY ONE HOUR BEFORE BREAKFAST
     Route: 048
     Dates: start: 20100409
  15. FLEXASE [Concomitant]
  16. TYLENOL (CAPLET) [Concomitant]
     Dosage: BID

REACTIONS (1)
  - LOWER LIMB FRACTURE [None]
